FAERS Safety Report 13333902 (Version 1)
Quarter: 2017Q1

REPORT INFORMATION
  Report Type: Report from Study
  Country: CA (occurrence: CA)
  Receive Date: 20170314
  Receipt Date: 20170314
  Transmission Date: 20170428
  Serious: Yes (Other)
  Sender: FDA-Public Use
  Company Number: CA-AMGEN-CANSL2017036758

PATIENT
  Age: 76 Year
  Sex: Female
  Weight: 45.35 kg

DRUGS (2)
  1. PROLIA [Suspect]
     Active Substance: DENOSUMAB
     Indication: OSTEOPOROSIS
     Dosage: UNK, UNK
     Route: 065
     Dates: start: 20160816
  2. PREDNISONE. [Suspect]
     Active Substance: PREDNISONE
     Indication: PRODUCT USED FOR UNKNOWN INDICATION
     Dosage: HALF TABLET (SIX TABLETS FOR TWO WEEKS)
     Route: 048

REACTIONS (11)
  - Gait disturbance [Unknown]
  - Nasopharyngitis [Unknown]
  - Hospitalisation [Unknown]
  - Tremor [Unknown]
  - Bone pain [Unknown]
  - Weight decreased [Unknown]
  - Decreased appetite [Unknown]
  - Myalgia [Unknown]
  - Pain in extremity [Unknown]
  - Body height decreased [Unknown]
  - Back pain [Unknown]

NARRATIVE: CASE EVENT DATE: 201612
